FAERS Safety Report 25978675 (Version 1)
Quarter: 2025Q4

REPORT INFORMATION
  Report Type: Report from Study
  Country: IN (occurrence: IN)
  Receive Date: 20251030
  Receipt Date: 20251030
  Transmission Date: 20260118
  Serious: Yes (Death)
  Sender: DAIICHI
  Company Number: IN-AstraZeneca-CH-00979504A

PATIENT
  Sex: Female

DRUGS (1)
  1. ENHERTU [Suspect]
     Active Substance: FAM-TRASTUZUMAB DERUXTECAN-NXKI
     Indication: Breast cancer metastatic
     Dosage: 200 MG, ONCE EVERY 3 WK
     Route: 041

REACTIONS (3)
  - Interstitial lung disease [Fatal]
  - Pneumonia [Fatal]
  - Dyspnoea [Fatal]
